FAERS Safety Report 9596930 (Version 1)
Quarter: 2013Q4

REPORT INFORMATION
  Report Type: Spontaneous
  Country: FR (occurrence: FR)
  Receive Date: 20131004
  Receipt Date: 20131004
  Transmission Date: 20140711
  Serious: Yes (Life-Threatening)
  Sender: FDA-Public Use
  Company Number: FR-ASTRAZENECA-2013SE73275

PATIENT
  Age: 27028 Day
  Sex: Male

DRUGS (12)
  1. CRESTOR [Suspect]
     Route: 048
  2. TRIATEC [Suspect]
     Route: 048
     Dates: end: 201307
  3. KALEORID [Suspect]
     Route: 048
     Dates: end: 201307
  4. CHLORURE DE SODIUM 0,9%, BAXTER [Suspect]
     Route: 065
  5. XARELTO [Suspect]
     Route: 048
     Dates: end: 20130702
  6. XARELTO [Suspect]
     Route: 048
  7. KARDEGIC [Suspect]
     Route: 048
     Dates: end: 20130702
  8. KARDEGIC [Suspect]
     Route: 048
     Dates: start: 20130705
  9. CORDARONE [Suspect]
     Route: 048
  10. CARDENSIEL [Suspect]
     Route: 048
  11. LASILIX [Suspect]
     Route: 048
     Dates: end: 201307
  12. ALDACTONE [Suspect]
     Route: 048
     Dates: end: 201307

REACTIONS (5)
  - Haematemesis [Recovered/Resolved with Sequelae]
  - Hypovolaemic shock [Recovered/Resolved]
  - Chest pain [Recovered/Resolved]
  - Renal failure acute [Recovered/Resolved]
  - Gastric ulcer [Recovered/Resolved with Sequelae]
